FAERS Safety Report 5355841-3 (Version None)
Quarter: 2007Q2

REPORT INFORMATION
  Report Type: 
  Country: None (occurrence: None)
  Receive Date: 20070611
  Receipt Date: 20070611
  Transmission Date: 20071010
  Serious: Yes (Other)
  Sender: FDA-Public Use
  Company Number: None

PATIENT
  Sex: Female
  Weight: 72.5755 kg

DRUGS (1)
  1. CELESTONE [Suspect]
     Indication: SINUSITIS
     Dosage: ONE INJECTION
     Dates: start: 20061206, end: 20061206

REACTIONS (9)
  - CHILLS [None]
  - HEADACHE [None]
  - INJECTION SITE ABSCESS [None]
  - INJECTION SITE NERVE DAMAGE [None]
  - INJECTION SITE REACTION [None]
  - MOBILITY DECREASED [None]
  - PAIN [None]
  - PHARMACEUTICAL PRODUCT COMPLAINT [None]
  - PYREXIA [None]
